FAERS Safety Report 12899784 (Version 3)
Quarter: 2016Q4

REPORT INFORMATION
  Report Type: Spontaneous
  Country: US (occurrence: US)
  Receive Date: 20161101
  Receipt Date: 20161228
  Transmission Date: 20170207
  Serious: Yes (Other)
  Sender: FDA-Public Use
  Company Number: US-PFIZER INC-2016501375

PATIENT
  Age: 75 Year
  Sex: Female
  Weight: 82.55 kg

DRUGS (2)
  1. LATANOPROST. [Suspect]
     Active Substance: LATANOPROST
     Indication: OPEN ANGLE GLAUCOMA
     Dosage: 1 GTT, 1X/DAY [TOPICAL EYE DROP]
  2. LATANOPROST. [Suspect]
     Active Substance: LATANOPROST
     Indication: INTRAOCULAR PRESSURE TEST ABNORMAL
     Dosage: ONE DROP IN EACH EYE EVERY DAY

REACTIONS (2)
  - Ageusia [Not Recovered/Not Resolved]
  - Dysgeusia [Unknown]

NARRATIVE: CASE EVENT DATE: 2015
